FAERS Safety Report 14007004 (Version 1)
Quarter: 2017Q3

REPORT INFORMATION
  Report Type: Spontaneous
  Country: US (occurrence: US)
  Receive Date: 20170922
  Receipt Date: 20170922
  Transmission Date: 20171128
  Serious: Yes (Other)
  Sender: FDA-Public Use
  Company Number: None

PATIENT
  Age: 26 Year
  Sex: Female
  Weight: 42.75 kg

DRUGS (2)
  1. EXCEDRIN [Concomitant]
     Active Substance: ACETAMINOPHEN\ASPIRIN\CAFFEINE
  2. GABAPENTIN. [Suspect]
     Active Substance: GABAPENTIN
     Indication: PAIN
     Dosage: ?          QUANTITY:90 CAPSULE(S);?
     Route: 048

REACTIONS (5)
  - Overdose [None]
  - Thinking abnormal [None]
  - Eating disorder [None]
  - Disorientation [None]
  - Feeling abnormal [None]

NARRATIVE: CASE EVENT DATE: 20170901
